FAERS Safety Report 9265894 (Version 2)
Quarter: 2013Q2

REPORT INFORMATION
  Report Type: Spontaneous
  Country: US (occurrence: US)
  Receive Date: 20130501
  Receipt Date: 20130626
  Transmission Date: 20140414
  Serious: Yes (Hospitalization)
  Sender: FDA-Public Use
  Company Number: US-ABBOTT-13P-163-1082493-00

PATIENT
  Age: 42 Year
  Sex: Female
  Weight: 70.37 kg

DRUGS (2)
  1. LUPRON DEPOT [Suspect]
     Indication: ENDOMETRIOSIS
     Route: 030
     Dates: start: 20130206, end: 20130305
  2. NORETHINDRONE ACETATE [Concomitant]
     Indication: HORMONE THERAPY
     Route: 048
     Dates: start: 20130206

REACTIONS (6)
  - Hemiparesis [Recovering/Resolving]
  - Cerebrovascular accident [Not Recovered/Not Resolved]
  - Mean cell haemoglobin concentration decreased [Not Recovered/Not Resolved]
  - Blood urea decreased [Not Recovered/Not Resolved]
  - Urine leukocyte esterase [Not Recovered/Not Resolved]
  - Urine abnormality [Not Recovered/Not Resolved]
